FAERS Safety Report 4606628-8 (Version None)
Quarter: 2005Q2

REPORT INFORMATION
  Report Type: 
  Country: None (occurrence: None)
  Receive Date: 20050223
  Receipt Date: 20040412
  Transmission Date: 20051028
  Serious: Yes (Disabling)
  Sender: FDA-Public Use
  Company Number: WAES 0404USA01241

PATIENT
  Age: 80 Year
  Sex: Male

DRUGS (2)
  1. ZOCOR [Suspect]
     Indication: BLOOD CHOLESTEROL INCREASED
     Dosage: 20 MG/DAILY/PO;  10MG/DAILY/PO
     Route: 048
     Dates: start: 19950101, end: 20020101
  2. ZOCOR [Suspect]
     Indication: BLOOD CHOLESTEROL INCREASED
     Dosage: 20 MG/DAILY/PO;  10MG/DAILY/PO
     Route: 048
     Dates: start: 20020101, end: 20040301

REACTIONS (2)
  - ASTHENIA [None]
  - JOINT SWELLING [None]
